FAERS Safety Report 20871981 (Version 4)
Quarter: 2022Q2

REPORT INFORMATION
  Report Type: Spontaneous
  Country: JP (occurrence: JP)
  Receive Date: 20220525
  Receipt Date: 20220630
  Transmission Date: 20220720
  Serious: Yes (Other)
  Sender: FDA-Public Use
  Company Number: JP-NBI-J202208951BIPI

PATIENT
  Age: 89 Year
  Sex: Male

DRUGS (7)
  1. LINAGLIPTIN [Suspect]
     Active Substance: LINAGLIPTIN
     Indication: Type 2 diabetes mellitus
     Route: 048
     Dates: start: 20220519, end: 20220523
  2. TAMSLON OD [Concomitant]
     Indication: Benign prostatic hyperplasia
     Route: 048
  3. TAMSLON OD [Concomitant]
     Indication: Dysuria
  4. CALONAL [Concomitant]
     Active Substance: ACETAMINOPHEN
     Indication: Upper respiratory tract inflammation
     Route: 048
  5. FENOFIBRATE [Concomitant]
     Active Substance: FENOFIBRATE
     Indication: Dyslipidaemia
     Route: 048
  6. CELECOXIB [Concomitant]
     Active Substance: CELECOXIB
     Indication: Product used for unknown indication
     Route: 048
  7. LANSOPRAZOLE [Concomitant]
     Active Substance: LANSOPRAZOLE
     Indication: Gastrooesophageal reflux disease
     Route: 048

REACTIONS (3)
  - Delirium [Unknown]
  - Cognitive disorder [Unknown]
  - COVID-19 [Unknown]

NARRATIVE: CASE EVENT DATE: 20220523
